FAERS Safety Report 15477455 (Version 1)
Quarter: 2018Q4

REPORT INFORMATION
  Report Type: Spontaneous
  Country: GB (occurrence: GB)
  Receive Date: 20181009
  Receipt Date: 20181009
  Transmission Date: 20190205
  Serious: Yes (Other)
  Sender: FDA-Public Use
  Company Number: GB-FERRINGPH-2018FE05316

PATIENT

DRUGS (1)
  1. PROGESTERONE. [Suspect]
     Active Substance: PROGESTERONE
     Indication: CONTRACEPTION
     Dosage: UNK
     Route: 048
     Dates: start: 20180904, end: 20180907

REACTIONS (2)
  - Product use in unapproved indication [Unknown]
  - Suppressed lactation [Unknown]

NARRATIVE: CASE EVENT DATE: 20180904
